FAERS Safety Report 15034621 (Version 1)
Quarter: 2018Q2

REPORT INFORMATION
  Report Type: Spontaneous
  Country: US (occurrence: US)
  Receive Date: 20180620
  Receipt Date: 20180620
  Transmission Date: 20180711
  Serious: Yes (Other)
  Sender: FDA-Public Use
  Company Number: US-EDENBRIDGE PHARMACEUTICALS, LLC-US-2018EDE000180

PATIENT
  Age: 88 Year
  Sex: Female

DRUGS (4)
  1. LEVODOPA [Suspect]
     Active Substance: LEVODOPA
     Indication: NERVOUS SYSTEM DISORDER
     Dosage: 250 MG, UNK
  2. CARBIDOPA. [Suspect]
     Active Substance: CARBIDOPA
     Indication: NERVOUS SYSTEM DISORDER
     Dosage: 25 MG, UNK
  3. LEVODOPA [Suspect]
     Active Substance: LEVODOPA
     Dosage: 500 MG, UNK (TRIAL DOSE)
  4. CARBIDOPA. [Suspect]
     Active Substance: CARBIDOPA
     Dosage: 50 MG, UNK (TRIAL DOSE)

REACTIONS (2)
  - Atrial fibrillation [Unknown]
  - Cardiac failure [Unknown]
